FAERS Safety Report 8913008 (Version 1)
Quarter: 2012Q4

REPORT INFORMATION
  Report Type: Spontaneous
  Country: US (occurrence: None)
  Receive Date: 20121114
  Receipt Date: 20121114
  Transmission Date: 20130627
  Serious: Yes (Death)
  Sender: FDA-Public Use
  Company Number: None

PATIENT
  Age: 62 Year
  Sex: Male
  Weight: 92.31 kg

DRUGS (46)
  1. BRENTUXIMAB VEDOTIN [Suspect]
     Indication: ACUTE GRAFT VERSUS HOST DISEASE
     Route: 042
     Dates: start: 20121011
  2. BRENTUXIMAB VEDOTIN [Suspect]
     Indication: ACUTE GRAFT VERSUS HOST DISEASE
     Dates: start: 20121019
  3. BRENTUXIMAB VEDOTIN [Suspect]
     Indication: ACUTE GRAFT VERSUS HOST DISEASE
     Dates: start: 20121026
  4. NEUPOGEN [Concomitant]
  5. PROTOPIC [Concomitant]
  6. MUPIROCIN BACITRACIN [Concomitant]
  7. MICAFUNGIN [Concomitant]
  8. CITRACIN [Concomitant]
  9. ACYCLOVIR [Concomitant]
  10. VANCOMCYIN [Concomitant]
  11. CHOLECALCIFEROL [Concomitant]
  12. AQUAPHOR [Concomitant]
  13. VORICONAZOLE [Concomitant]
  14. NYSTATIN SUSPENSION [Concomitant]
  15. TRYPSIN - BALSAM PERU - C [Concomitant]
  16. IMIPENEM-CILASTATIN [Concomitant]
  17. MEPRON SUSPENSION [Concomitant]
  18. MAGNESIUM SULFATE [Concomitant]
  19. ATORVASTATIN [Concomitant]
  20. INSULIN REGULAR HUMAN [Concomitant]
  21. SOLUMEDROL [Concomitant]
  22. SODIUM PHOSPHATE [Concomitant]
  23. POTASSIUM CHLORIDE [Concomitant]
  24. LACRI-LUBE OINTMENT [Concomitant]
  25. TEARS NATURALE [Concomitant]
  26. CHLORHEXIDINE MOUTHWASH [Concomitant]
  27. FAMOTIDINE [Concomitant]
  28. AMIODARONE [Concomitant]
  29. SODIUM BICARBONATE [Concomitant]
  30. CALCIUM GLUCONATE [Concomitant]
  31. VITAMIN A + D [Concomitant]
  32. EUCERIN CREAM [Concomitant]
  33. FENTANYL CITRATE [Concomitant]
  34. SODIUM CHLORIDE [Concomitant]
  35. DOCUSATE SODIUM [Concomitant]
  36. SENNOSIDES [Concomitant]
  37. LIDOCAINE HCL [Concomitant]
  38. DUONEB [Concomitant]
  39. DEXTROSE [Concomitant]
  40. NEO-SYNEPHRINE [Concomitant]
  41. EPINEPHRINE HCL65 [Concomitant]
  42. VASOPRESSIN (SYNTHETIC) [Concomitant]
  43. NEO-SYNEPHRINE [Concomitant]
  44. LEVOPHED [Concomitant]
  45. CENTRAL TPN [Concomitant]
  46. PRISMASOL BGK4/CA2.5 [Concomitant]

REACTIONS (6)
  - Neutropenia [None]
  - General physical health deterioration [None]
  - Multi-organ failure [None]
  - Sepsis [None]
  - Fungaemia [None]
  - Diffuse alveolar damage [None]
